FAERS Safety Report 23312323 (Version 2)
Quarter: 2023Q4

REPORT INFORMATION
  Report Type: Spontaneous
  Country: US (occurrence: US)
  Receive Date: 20231219
  Receipt Date: 20231229
  Transmission Date: 20240110
  Serious: Yes (Other)
  Sender: FDA-Public Use
  Company Number: US-LUPIN HEALTHCARE (UK) LIMITED-2023-11253

PATIENT

DRUGS (3)
  1. SERTRALINE HYDROCHLORIDE [Suspect]
     Active Substance: SERTRALINE HYDROCHLORIDE
     Indication: Obsessive-compulsive disorder
     Dosage: 1 DOSAGE FORM, QD
     Route: 048
     Dates: start: 202308
  2. SERTRALINE HYDROCHLORIDE [Suspect]
     Active Substance: SERTRALINE HYDROCHLORIDE
     Dosage: 1.5 DOSAGE FORM, QD
     Route: 048
     Dates: start: 202311
  3. CLARITIN [Concomitant]
     Active Substance: LORATADINE
     Indication: Hypersensitivity
     Dosage: 5 MG, QD (1 TABLET ONCE DAILY)
     Route: 048

REACTIONS (1)
  - Retinal oedema [Not Recovered/Not Resolved]

NARRATIVE: CASE EVENT DATE: 20231104
